FAERS Safety Report 24361455 (Version 2)
Quarter: 2024Q4

REPORT INFORMATION
  Report Type: Spontaneous
  Country: BE (occurrence: BE)
  Receive Date: 20240925
  Receipt Date: 20241029
  Transmission Date: 20250115
  Serious: Yes (Hospitalization, Other)
  Sender: SANOFI AVENTIS
  Company Number: BE-SA-2024SA274232

PATIENT
  Age: 49 Year
  Sex: Male
  Weight: 95 kg

DRUGS (17)
  1. FABRAZYME [Suspect]
     Active Substance: AGALSIDASE BETA
     Indication: Fabry^s disease
     Dosage: 95 MG (1 MG/KG), QOW
     Route: 042
     Dates: start: 20230513
  2. SINTROM [Suspect]
     Active Substance: ACENOCOUMAROL
     Indication: Anticoagulant therapy
     Dosage: UNK
  3. SINTROM [Suspect]
     Active Substance: ACENOCOUMAROL
     Dosage: 2 MG/ INJECTION, QD
     Route: 048
     Dates: start: 20240914
  4. DAFALGAN [Concomitant]
     Active Substance: ACETAMINOPHEN
     Indication: Premedication
     Dosage: UNK
  5. BILASTINE [Concomitant]
     Active Substance: BILASTINE
     Indication: Premedication
  6. ALPRAZOLAM [Concomitant]
     Active Substance: ALPRAZOLAM
     Dosage: SN, 1/2 PER DAY (QD)
     Route: 048
     Dates: start: 20230504
  7. BISOPROLOL [Concomitant]
     Active Substance: BISOPROLOL\BISOPROLOL FUMARATE
     Dosage: UNK UNK, QD (1/2/ DAY)
     Route: 048
     Dates: start: 20230309
  8. SODIUM CHLORIDE [Concomitant]
     Active Substance: SODIUM CHLORIDE
     Dosage: UNK UNK, QOW (TUESDAY)
     Route: 041
     Dates: start: 20230613
  9. CALCIUM CARBONATE [Concomitant]
     Active Substance: CALCIUM CARBONATE
     Dosage: 1 G, QD
     Route: 048
     Dates: start: 20230309
  10. CRESTOR [Concomitant]
     Active Substance: ROSUVASTATIN CALCIUM
     Dosage: 20 MG, QD (1/2/DAY)
     Route: 048
     Dates: start: 20220301
  11. EZETIMIBE [Concomitant]
     Active Substance: EZETIMIBE
     Dosage: UNK UNK, QD (1X/DAY)
     Route: 048
     Dates: start: 20220301
  12. FOLIC ACID [Concomitant]
     Active Substance: FOLIC ACID
     Dosage: 4 MG, TIW (3X/WEEK)
     Route: 048
     Dates: start: 20240613
  13. LORMETAZEPAM [Concomitant]
     Active Substance: LORMETAZEPAM
     Dosage: UNK UNK, QD (1/2 TAB/DAY)
     Route: 048
     Dates: start: 20220301
  14. LYRICA [Concomitant]
     Active Substance: PREGABALIN
     Dosage: UNK UNK, QD (1X/DAY)
     Route: 048
     Dates: start: 20240613
  15. RAMIPRIL [Concomitant]
     Active Substance: RAMIPRIL
     Dosage: UNK UNK, QD (EA)
     Route: 048
     Dates: start: 20220301
  16. VENLAFAXINE [Concomitant]
     Active Substance: VENLAFAXINE HYDROCHLORIDE
     Dosage: 150 MG, QD
     Route: 048
     Dates: start: 20220301
  17. KAYEXALATE CALCIUM [Concomitant]
     Dosage: 1 TO 2 X/DAY, QD

REACTIONS (23)
  - Rectal haemorrhage [Unknown]
  - Gastrointestinal haemorrhage [Unknown]
  - Overdose [Unknown]
  - Colitis ischaemic [Unknown]
  - Colitis ulcerative [Unknown]
  - Diarrhoea haemorrhagic [Recovering/Resolving]
  - Renal atrophy [Unknown]
  - Nephrolithiasis [Unknown]
  - Colitis [Unknown]
  - Melaena [Recovered/Resolved]
  - Haematochezia [Unknown]
  - Haemoglobin decreased [Unknown]
  - C-reactive protein increased [Recovering/Resolving]
  - International normalised ratio increased [Recovering/Resolving]
  - Gastrointestinal hypomotility [Unknown]
  - Gastrointestinal wall thickening [Unknown]
  - Hypernatraemia [Unknown]
  - Platelet count decreased [Unknown]
  - Large intestine infection [Unknown]
  - Blood potassium decreased [Unknown]
  - Diverticulum intestinal [Unknown]
  - Hypotension [Recovering/Resolving]
  - Abdominal pain [Unknown]

NARRATIVE: CASE EVENT DATE: 20240903
